FAERS Safety Report 5934323-1 (Version None)
Quarter: 2008Q4

REPORT INFORMATION
  Report Type: 
  Country: None (occurrence: None)
  Receive Date: 20081029
  Receipt Date: 20081020
  Transmission Date: 20090506
  Serious: Yes (Other)
  Sender: FDA-Public Use
  Company Number: PHHY2008AU23220

PATIENT
  Sex: Male

DRUGS (4)
  1. CLOZARIL [Suspect]
     Indication: SCHIZOPHRENIA
     Dosage: 625 MG/DAY
  2. LEVOTHYROXINE SODIUM [Concomitant]
     Indication: HYPOTHYROIDISM
     Dosage: 200 UG DAILY
  3. VALPROATE SODIUM [Concomitant]
     Indication: AFFECTIVE DISORDER
     Dosage: 1 G MANE AND 1.5G NOCTE
  4. LITHIUM CARBONATE [Concomitant]
     Indication: AFFECTIVE DISORDER
     Dosage: 200 MG MANE AND 800 MG NOCTE
     Dates: start: 20080819

REACTIONS (6)
  - BLOOD POTASSIUM INCREASED [None]
  - BLOOD THYROID STIMULATING HORMONE DECREASED [None]
  - CARDIOMYOPATHY [None]
  - DRUG LEVEL ABOVE THERAPEUTIC [None]
  - ECHOCARDIOGRAM ABNORMAL [None]
  - LEFT VENTRICULAR HYPERTROPHY [None]
